FAERS Safety Report 18574799 (Version 2)
Quarter: 2020Q4

REPORT INFORMATION
  Report Type: Spontaneous
  Country: CN (occurrence: CN)
  Receive Date: 20201203
  Receipt Date: 20201209
  Transmission Date: 20210114
  Serious: Yes (Other)
  Sender: FDA-Public Use
  Company Number: CN-BAYER-2020-258703

PATIENT
  Age: 44 Year
  Sex: Male

DRUGS (3)
  1. SORAFENIB (RAF KINASE INHIBITOR) [Suspect]
     Active Substance: SORAFENIB
     Indication: RENAL CELL CARCINOMA
     Dosage: 0.4 G, BID
     Route: 048
     Dates: start: 201906, end: 201908
  2. SORAFENIB (RAF KINASE INHIBITOR) [Suspect]
     Active Substance: SORAFENIB
     Indication: RENAL CELL CARCINOMA
     Dosage: 0.2 G, BID
     Route: 048
     Dates: start: 201908, end: 201908
  3. SORAFENIB (RAF KINASE INHIBITOR) [Suspect]
     Active Substance: SORAFENIB
     Indication: RENAL CELL CARCINOMA
     Dosage: 0.4 G, BID
     Route: 048
     Dates: start: 201908

REACTIONS (4)
  - Diarrhoea [None]
  - Palmar-plantar erythrodysaesthesia syndrome [None]
  - Posterior reversible encephalopathy syndrome [Recovering/Resolving]
  - Epilepsy [None]

NARRATIVE: CASE EVENT DATE: 201906
